FAERS Safety Report 5449065-9 (Version None)
Quarter: 2007Q3

REPORT INFORMATION
  Report Type: 
  Country: None (occurrence: None)
  Receive Date: 20070911
  Receipt Date: 20070831
  Transmission Date: 20080115
  Serious: Yes (Life-Threatening, Hospitalization)
  Sender: FDA-Public Use
  Company Number: DE-JNJFOC-20070803508

PATIENT
  Age: 44 Year
  Sex: Male

DRUGS (4)
  1. TAVANIC [Suspect]
     Indication: CYSTITIS
     Route: 048
     Dates: start: 20070723, end: 20070727
  2. TAVANIC [Suspect]
     Indication: PYELONEPHRITIS
     Route: 048
     Dates: start: 20070723, end: 20070727
  3. CEFUROXIME [Concomitant]
     Route: 048
  4. MARCUMAR [Concomitant]
     Route: 048

REACTIONS (3)
  - MYALGIA [None]
  - TENDONITIS [None]
  - VENOUS THROMBOSIS [None]
